FAERS Safety Report 10335015 (Version 1)
Quarter: 2014Q3

REPORT INFORMATION
  Report Type: Spontaneous
  Country: US (occurrence: None)
  Receive Date: 20140721
  Receipt Date: 20140721
  Transmission Date: 20150326
  Serious: Yes (Other)
  Sender: FDA-Public Use
  Company Number: PR-AE14-000803

PATIENT
  Age: 48 Year
  Sex: Female

DRUGS (1)
  1. GOODYS COOL ORANGE HEADACHE [Suspect]
     Active Substance: ACETAMINOPHEN\ASPIRIN\CAFFEINE
     Indication: ANALGESIC THERAPY
     Dosage: 5-10 POWDERS/DAY, ORAL
     Route: 048

REACTIONS (1)
  - Dependence [None]
